FAERS Safety Report 15254514 (Version 1)
Quarter: 2018Q3

REPORT INFORMATION
  Report Type: Spontaneous
  Country: US (occurrence: US)
  Receive Date: 20180808
  Receipt Date: 20180808
  Transmission Date: 20181010
  Serious: Yes (Life-Threatening, Hospitalization, Other)
  Sender: FDA-Public Use
  Company Number: US-MACLEODS PHARMACEUTICALS US LTD-MAC2018016013

PATIENT

DRUGS (2)
  1. GUANFACINE. [Suspect]
     Active Substance: GUANFACINE
     Indication: PRODUCT USED FOR UNKNOWN INDICATION
     Dosage: 63 DOSAGE FORM 1 TOTAL, OVERDOSE
     Route: 048
  2. OLANZAPINE 5MG TABLET [Suspect]
     Active Substance: OLANZAPINE
     Indication: SUICIDE ATTEMPT
     Dosage: 68 DOSAGE FORM, 1 TOTAL, 68 OLANZAPINE 5 MG TABLETS (340 MG TOTAL), OVERDOSE
     Route: 048

REACTIONS (6)
  - Sinus bradycardia [Recovered/Resolved]
  - Sinus arrest [Recovered/Resolved]
  - Agitation [Unknown]
  - Depressed level of consciousness [Unknown]
  - Intentional overdose [Unknown]
  - Orthostatic hypotension [Recovered/Resolved]
